FAERS Safety Report 8558813-0 (Version None)
Quarter: 2012Q3

REPORT INFORMATION
  Report Type: 
  Country: None (occurrence: None)
  Receive Date: 20120801
  Receipt Date: 20101123
  Transmission Date: 20120928
  Serious: No
  Sender: FDA-Public Use
  Company Number: US-BAYER-201042115NA

PATIENT
  Age: 51 Year
  Sex: Female

DRUGS (4)
  1. ULTRAVIST 370 [Suspect]
     Indication: COMPUTERISED TOMOGRAM
     Dosage: 90 ML, ONCE
     Route: 042
     Dates: start: 20101123, end: 20101123
  2. GLUCOPHAGE [Concomitant]
  3. INSULIN [INSULIN] [Concomitant]
  4. ULTRAVIST 370 [Suspect]
     Indication: NASAL CAVITY MASS

REACTIONS (1)
  - SCRATCH [None]
